FAERS Safety Report 19666663 (Version 3)
Quarter: 2021Q3

REPORT INFORMATION
  Report Type: Report from Study
  Country: DE (occurrence: DE)
  Receive Date: 20210806
  Receipt Date: 20210915
  Transmission Date: 20211014
  Serious: Yes (Life-Threatening, Hospitalization, Other)
  Sender: FDA-Public Use
  Company Number: DE-MYLANLABS-2021M1048616

PATIENT
  Age: 77 Year
  Sex: Female
  Weight: 56 kg

DRUGS (13)
  1. PALBOCICLIB [Suspect]
     Active Substance: PALBOCICLIB
     Dosage: 100 MILLIGRAM, QD (SCHEME 21 DAYS INTAKE, 7 DAYS PAUSE)
     Route: 048
     Dates: start: 20200114
  2. PALBOCICLIB [Suspect]
     Active Substance: PALBOCICLIB
     Dosage: 100 MILLIGRAM, QD (SCHEME 21 DAYS INTAKE, 7 DAYS PAUSE)
     Route: 048
     Dates: start: 20200603, end: 20200728
  3. VOCADO [Concomitant]
     Active Substance: AMLODIPINE BESYLATE\OLMESARTAN MEDOXOMIL
     Indication: PRODUCT USED FOR UNKNOWN INDICATION
     Dosage: 40 MILLIGRAM, QD (ONCE PER DAY IN THE MORNING)
     Route: 065
     Dates: start: 2019
  4. PALBOCICLIB [Suspect]
     Active Substance: PALBOCICLIB
     Indication: BREAST CANCER METASTATIC
     Dosage: 100 MILLIGRAM, QD  (SCHEME 21 DAYS INTAKE, 7 DAYS PAUSE)
     Route: 048
     Dates: start: 20200812
  5. BISOPROLOL [Concomitant]
     Active Substance: BISOPROLOL
     Indication: PRODUCT USED FOR UNKNOWN INDICATION
     Dosage: 0.5 DOSAGE FORM, QD (10/25 MG ONCE PER DAY IN THE MORNING)
     Route: 065
     Dates: start: 2000
  6. LETROZOLE. [Suspect]
     Active Substance: LETROZOLE
     Indication: BREAST CANCER METASTATIC
     Dosage: 2.5 MILLIGRAM, QD
     Route: 048
     Dates: start: 20190704, end: 20190819
  7. KISQALI [Suspect]
     Active Substance: RIBOCICLIB
     Indication: BREAST CANCER METASTATIC
     Dosage: 600 MILLIGRAM, QD (ADMINISTRATION SCHEME 21 DAYS INTAKE, 7 DAYS PAUSE)
     Route: 048
     Dates: start: 20190704, end: 20190717
  8. NOVALGIN (METAMIZOLE SODIUM) [Concomitant]
     Active Substance: METAMIZOLE SODIUM
     Indication: PRODUCT USED FOR UNKNOWN INDICATION
     Dosage: 500 MILLIGRAM, PRN
     Route: 065
     Dates: start: 201904
  9. DEKRISTOL [Concomitant]
     Active Substance: CHOLECALCIFEROL
     Indication: PRODUCT USED FOR UNKNOWN INDICATION
     Dosage: 20000 INTERNATIONAL UNIT, MONTHLY
     Route: 065
     Dates: start: 2016
  10. CALCIUM [Concomitant]
     Active Substance: CALCIUM
     Indication: PRODUCT USED FOR UNKNOWN INDICATION
     Dosage: 400 MILLIGRAM, QD (ONCE PER DAY AT NOON)
     Route: 065
     Dates: start: 2016
  11. L?THYROXINE                        /00068001/ [Concomitant]
     Active Substance: LEVOTHYROXINE
     Indication: PRODUCT USED FOR UNKNOWN INDICATION
     Dosage: 88 MICROGRAM, QD (ONCE PER DAY IN THE MORINING)
     Route: 065
     Dates: start: 2011
  12. KISQALI [Suspect]
     Active Substance: RIBOCICLIB
     Dosage: 400 MILLIGRAM, QD (ADMINISTRATION SCHEME 21 DAYS INTAKE, 7 DAYS PAUSE)
     Route: 048
     Dates: start: 20190808, end: 20190808
  13. ASPIRIN. [Concomitant]
     Active Substance: ASPIRIN
     Indication: PRODUCT USED FOR UNKNOWN INDICATION
     Dosage: 100 MILLIGRAM, QD (ONCE PER DAY AT NOON)
     Route: 065
     Dates: start: 2000

REACTIONS (12)
  - Eastern Cooperative Oncology Group performance status worsened [Recovered/Resolved]
  - Concomitant disease aggravated [Recovering/Resolving]
  - Atrial fibrillation [Recovering/Resolving]
  - Vomiting [Recovered/Resolved]
  - Dyspnoea [Not Recovered/Not Resolved]
  - General physical health deterioration [Recovered/Resolved]
  - Neutropenia [Recovering/Resolving]
  - Dry skin [Recovering/Resolving]
  - Thrombocytopenia [Recovering/Resolving]
  - Nausea [Recovered/Resolved]
  - Leukopenia [Recovering/Resolving]
  - Hypertension [Recovering/Resolving]

NARRATIVE: CASE EVENT DATE: 20190716
